FAERS Safety Report 23832146 (Version 1)
Quarter: 2024Q2

REPORT INFORMATION
  Report Type: Spontaneous
  Country: CN (occurrence: CN)
  Receive Date: 20240508
  Receipt Date: 20240508
  Transmission Date: 20240716
  Serious: Yes (Hospitalization, Other)
  Sender: FDA-Public Use
  Company Number: CN-ELI_LILLY_AND_COMPANY-CN202405001270

PATIENT
  Age: 57 Year
  Sex: Male
  Weight: 65 kg

DRUGS (3)
  1. GEMCITABINE HYDROCHLORIDE [Suspect]
     Active Substance: GEMCITABINE HYDROCHLORIDE
     Indication: Nasopharyngeal cancer
     Dosage: 1.4 G, OTHER (ONCE EVERY 21 DAYS)
     Route: 041
     Dates: start: 20240424, end: 20240424
  2. TISLELIZUMAB [Concomitant]
     Active Substance: TISLELIZUMAB
     Indication: Nasopharyngeal cancer
     Dosage: 200 MG, OTHER (ONCE EVERY 21 DAYS)
     Route: 041
     Dates: start: 20240424, end: 20240424
  3. CISPLATIN [Concomitant]
     Active Substance: CISPLATIN
     Indication: Nasopharyngeal cancer
     Dosage: 120 MG, OTHER (ONCE EVERY 21 DAYS)
     Route: 041
     Dates: start: 20240424, end: 20240424

REACTIONS (4)
  - Liver injury [Unknown]
  - Platelet count decreased [Not Recovered/Not Resolved]
  - White blood cell count increased [Not Recovered/Not Resolved]
  - Off label use [Unknown]

NARRATIVE: CASE EVENT DATE: 20240426
